FAERS Safety Report 25971898 (Version 2)
Quarter: 2025Q4

REPORT INFORMATION
  Report Type: Spontaneous
  Country: EU (occurrence: EU)
  Receive Date: 20251029
  Receipt Date: 20251203
  Transmission Date: 20260118
  Serious: Yes (Other)
  Sender: BOEHRINGER INGELHEIM
  Company Number: EU-BoehringerIngelheim-2025-BI-102781

PATIENT
  Sex: Male
  Weight: 89 kg

DRUGS (3)
  1. OFEV [Suspect]
     Active Substance: NINTEDANIB
     Indication: Idiopathic pulmonary fibrosis
     Dates: start: 201804
  2. OFEV [Suspect]
     Active Substance: NINTEDANIB
  3. LOPERAMIDE [Concomitant]
     Active Substance: LOPERAMIDE
     Indication: Product used for unknown indication

REACTIONS (2)
  - Idiopathic pulmonary fibrosis [Unknown]
  - Diarrhoea [Unknown]
